FAERS Safety Report 9699077 (Version 2)
Quarter: 2013Q4

REPORT INFORMATION
  Report Type: Spontaneous
  Country: JP (occurrence: JP)
  Receive Date: 20131120
  Receipt Date: 20131210
  Transmission Date: 20140711
  Serious: Yes (Hospitalization)
  Sender: FDA-Public Use
  Company Number: JP-EISAI INC-E2090-02976-SPO-JP

PATIENT
  Age: 17 Year
  Sex: Male

DRUGS (16)
  1. EXCEGRAN [Suspect]
     Indication: CONVULSION
     Route: 048
     Dates: start: 20131011, end: 20131101
  2. ZOSYN [Suspect]
     Indication: PRODUCT USED FOR UNKNOWN INDICATION
     Dosage: UNKNOWN
     Route: 041
     Dates: start: 201310, end: 2013
  3. TAKEPRON [Suspect]
     Indication: OESOPHAGITIS
     Dosage: 15 MG/DAY
     Route: 048
     Dates: start: 20131008, end: 20131101
  4. GOREISAN [Suspect]
     Indication: DIZZINESS
     Dosage: 7.5 G/DAY
     Route: 048
     Dates: start: 20131008, end: 20131101
  5. MARZULENE-S [Suspect]
     Indication: GASTRITIS
     Dosage: 1.8 G/DAY
     Route: 048
     Dates: start: 20131030, end: 20131101
  6. RIKKUNSHITO [Suspect]
     Indication: DECREASED APPETITE
     Dosage: 7.5 MG/DAY
     Route: 048
     Dates: start: 20131030, end: 20131101
  7. STROCAIN [Suspect]
     Indication: ABDOMINAL PAIN UPPER
     Dosage: 15 MG/DAY
     Route: 048
     Dates: start: 20131031, end: 20131101
  8. ADONA [Concomitant]
     Dosage: UNKNOWN
  9. TRANSAMIN [Concomitant]
     Dosage: UNKNOWN
  10. HORIZON [Concomitant]
     Dosage: UNKNOWN
  11. SOSEGON [Concomitant]
     Dosage: UNKNOWN
  12. PRIMPERAN [Concomitant]
     Dosage: UNKNOWN
  13. ATARAX-P [Concomitant]
     Dosage: UNKNOWN
  14. CELECOX [Concomitant]
     Dosage: UNKNOWN
  15. SM [Concomitant]
     Dosage: UNKNOWN
  16. GASTER D [Concomitant]
     Dosage: UNKNOWN

REACTIONS (1)
  - Drug reaction with eosinophilia and systemic symptoms [Recovering/Resolving]
